FAERS Safety Report 20939134 (Version 1)
Quarter: 2022Q2

REPORT INFORMATION
  Report Type: Spontaneous
  Country: RU (occurrence: RU)
  Receive Date: 20220609
  Receipt Date: 20220609
  Transmission Date: 20220721
  Serious: Yes (Other)
  Sender: FDA-Public Use
  Company Number: RU-ASTELLAS-2022US019914

PATIENT
  Age: 45 Year
  Sex: Male

DRUGS (1)
  1. TAMSULOSIN HYDROCHLORIDE [Suspect]
     Active Substance: TAMSULOSIN HYDROCHLORIDE
     Indication: Product used for unknown indication
     Dosage: 0.4 MG, ONCE DAILY
     Route: 048
     Dates: start: 20220528, end: 20220528

REACTIONS (3)
  - Tinnitus [Unknown]
  - Palpitations [Unknown]
  - Headache [Unknown]

NARRATIVE: CASE EVENT DATE: 20220528
